FAERS Safety Report 23622131 (Version 1)
Quarter: 2024Q1

REPORT INFORMATION
  Report Type: Spontaneous
  Country: US (occurrence: None)
  Receive Date: 20240311
  Receipt Date: 20240311
  Transmission Date: 20240409
  Serious: Yes (Life-Threatening, Hospitalization)
  Sender: FDA-Public Use
  Company Number: None

PATIENT
  Age: 48 Year
  Sex: Male
  Weight: 121.56 kg

DRUGS (11)
  1. TIANEPTINE [Suspect]
     Active Substance: TIANEPTINE
     Indication: Anxiety
     Dosage: FREQUENCY : ONCE;?
     Route: 048
     Dates: start: 20240212, end: 20240212
  2. albuterol 2.5 mg [Concomitant]
  3. AMLODOP[INE 10 MG [Concomitant]
  4. BUMETANIDE 2 MG [Concomitant]
  5. CARVEDILOL [Concomitant]
     Active Substance: CARVEDILOL
  6. CLONAZEPAM [Concomitant]
     Active Substance: CLONAZEPAM
  7. CLONIDINE [Concomitant]
     Active Substance: CLONIDINE
  8. FLUOXETINE 60 MG [Concomitant]
  9. GABAPENTIN 250 MG [Concomitant]
  10. HYDRLAZINE 50 MG [Concomitant]
  11. BUTALBITAL [Concomitant]
     Active Substance: BUTALBITAL

REACTIONS (4)
  - Panic attack [None]
  - Seizure [None]
  - Renal injury [None]
  - Myocardial infarction [None]

NARRATIVE: CASE EVENT DATE: 20240212
